FAERS Safety Report 8078416-4 (Version None)
Quarter: 2012Q1

REPORT INFORMATION
  Report Type: 
  Country: None (occurrence: None)
  Receive Date: 20120123
  Receipt Date: 20120111
  Transmission Date: 20120608
  Serious: Yes (Other)
  Sender: FDA-Public Use
  Company Number: 128528

PATIENT
  Age: 7 Year
  Sex: Female
  Weight: 27.2158 kg

DRUGS (1)
  1. METHROTREXATE INJ. USP 250MG/10ML-BEDFORD LABS, INC. [Suspect]
     Indication: JUVENILE ARTHRITIS
     Dosage: 0.8ML/SUBCUTANEOUSLY/ONCE WEEKLY ON SATUR
     Route: 058
     Dates: start: 20110311

REACTIONS (3)
  - INJECTION SITE PAIN [None]
  - WRONG TECHNIQUE IN DRUG USAGE PROCESS [None]
  - MEDICATION ERROR [None]
